FAERS Safety Report 21314266 (Version 5)
Quarter: 2023Q1

REPORT INFORMATION
  Report Type: Report from Study
  Country: US (occurrence: US)
  Receive Date: 20220909
  Receipt Date: 20230103
  Transmission Date: 20230418
  Serious: Yes (Hospitalization, Other)
  Sender: FDA-Public Use
  Company Number: US-BoehringerIngelheim-2022-BI-180917

PATIENT
  Age: 65 Year
  Sex: Male

DRUGS (2)
  1. OFEV [Suspect]
     Active Substance: NINTEDANIB
     Indication: Idiopathic pulmonary fibrosis
     Route: 048
     Dates: start: 20220604
  2. OFEV [Suspect]
     Active Substance: NINTEDANIB
     Indication: Interstitial lung disease
     Dates: start: 20210707

REACTIONS (19)
  - Localised infection [Recovered/Resolved]
  - Aortic valve stenosis [Not Recovered/Not Resolved]
  - Skin wound [Recovered/Resolved]
  - Dyspnoea [Not Recovered/Not Resolved]
  - Bacterial infection [Recovered/Resolved]
  - Blood pressure increased [Recovered/Resolved]
  - Arthralgia [Recovered/Resolved]
  - Oxygen saturation decreased [Not Recovered/Not Resolved]
  - Impaired healing [Unknown]
  - Weight decreased [Not Recovered/Not Resolved]
  - Faeces soft [Not Recovered/Not Resolved]
  - Muscle contusion [Recovered/Resolved]
  - Diarrhoea [Recovered/Resolved]
  - Tooth infection [Not Recovered/Not Resolved]
  - Pain in extremity [Not Recovered/Not Resolved]
  - Arthralgia [Not Recovered/Not Resolved]
  - Injury [Unknown]
  - Rheumatoid arthritis [Unknown]
  - Pneumonia bacterial [Unknown]

NARRATIVE: CASE EVENT DATE: 20220101
